FAERS Safety Report 8979666 (Version 1)
Quarter: 2012Q4

REPORT INFORMATION
  Report Type: 
  Country: US (occurrence: US)
  Receive Date: 20121221
  Receipt Date: 20121221
  Transmission Date: 20130627
  Serious: Yes (Death, Hospitalization)
  Sender: FDA-Public Use
  Company Number: US-MYLANLABS-2012S1025557

PATIENT
  Age: 79 Year
  Sex: Male

DRUGS (7)
  1. DABIGATRAN ETEXILATE [Suspect]
     Indication: ATRIAL FIBRILLATION
     Route: 065
  2. DABIGATRAN ETEXILATE [Suspect]
     Indication: CORONARY ARTERY DISEASE
     Route: 065
  3. ASPIRIN [Suspect]
     Indication: ATRIAL FIBRILLATION
     Dosage: 81 mg/day
     Route: 065
  4. ASPIRIN [Suspect]
     Indication: CORONARY ARTERY DISEASE
     Dosage: 81 mg/day
     Route: 065
  5. CLOPIDOGREL [Suspect]
     Indication: ATRIAL FIBRILLATION
     Dosage: 75 mg/day
     Route: 065
  6. CLOPIDOGREL [Suspect]
     Indication: CORONARY ARTERY DISEASE
     Dosage: 75 mg/day
     Route: 065
  7. SOTALOL [Suspect]
     Route: 065

REACTIONS (6)
  - Haemorrhagic disorder [Fatal]
  - Epistaxis [Unknown]
  - Melaena [Unknown]
  - Chest pain [Unknown]
  - Bradycardia [Fatal]
  - Cardiac arrest [Fatal]
